FAERS Safety Report 7793897 (Version 3)
Quarter: 2012Q4

REPORT INFORMATION
  Report Type: Report from Study
  Country: IT (occurrence: IT)
  Receive Date: 20110201
  Receipt Date: 20121023
  Transmission Date: 20130627
  Serious: Yes (Death, Other)
  Sender: FDA-Public Use
  Company Number: IT-BRISTOL-MYERS SQUIBB COMPANY-15510613

PATIENT
  Age: 63 Year
  Sex: Male
  Weight: 67 kg

DRUGS (9)
  1. CISPLATIN [Suspect]
     Indication: NON-SMALL CELL LUNG CANCER
     Route: 042
     Dates: start: 20101221
  2. ALIMTA [Suspect]
     Indication: NON-SMALL CELL LUNG CANCER
     Dosage: Vial
     Route: 042
     Dates: start: 20101221
  3. TACHIDOL [Concomitant]
  4. HUMULIN [Concomitant]
  5. RABEPRAZOLE [Concomitant]
  6. FOLINA [Concomitant]
  7. DOBETIN [Concomitant]
  8. ALOXI [Concomitant]
  9. DEXAMETHASONE [Concomitant]

REACTIONS (2)
  - Embolism [Fatal]
  - Myocardial infarction [Fatal]
